FAERS Safety Report 9417576 (Version 1)
Quarter: 2013Q3

REPORT INFORMATION
  Report Type: Spontaneous
  Country: CA (occurrence: CA)
  Receive Date: 20130724
  Receipt Date: 20130724
  Transmission Date: 20140515
  Serious: Yes (Hospitalization, Other)
  Sender: FDA-Public Use
  Company Number: CA-009507513-1307CAN013440

PATIENT
  Sex: Female

DRUGS (1)
  1. VICTRELIS TRIPLE [Suspect]
     Indication: HEPATITIS C
     Dosage: 0.5 ML, UNK
     Dates: start: 201301

REACTIONS (3)
  - Hospitalisation [Unknown]
  - Hip fracture [Recovering/Resolving]
  - Fall [Unknown]
